FAERS Safety Report 6681405-5 (Version None)
Quarter: 2010Q2

REPORT INFORMATION
  Report Type: 
  Country: None (occurrence: None)
  Receive Date: 20100414
  Receipt Date: 20100408
  Transmission Date: 20101027
  Serious: Yes (Death)
  Sender: FDA-Public Use
  Company Number: B0646288A

PATIENT
  Age: 64 Year
  Sex: Male

DRUGS (1)
  1. TOPOTECAN [Suspect]
     Dosage: 3MG PER DAY
     Route: 048
     Dates: start: 20100106, end: 20100111

REACTIONS (1)
  - NEUTROPENIC SEPSIS [None]
